FAERS Safety Report 7335320-4 (Version None)
Quarter: 2011Q1

REPORT INFORMATION
  Report Type: 
  Country: None (occurrence: None)
  Receive Date: 20110307
  Receipt Date: 20110228
  Transmission Date: 20110831
  Serious: Yes (Hospitalization)
  Sender: FDA-Public Use
  Company Number: PHHO2011IT01220

PATIENT
  Sex: Male
  Weight: 91 kg

DRUGS (10)
  1. NEORAL [Concomitant]
     Indication: RENAL TRANSPLANT
     Dosage: 50 MG, BID
     Route: 048
     Dates: start: 20101125
  2. ENAPREN [Concomitant]
     Indication: HYPERTENSION
     Dosage: UNK
     Dates: start: 20101220
  3. LEVOFLOXACIN [Suspect]
  4. LASIX [Concomitant]
     Indication: DIURETIC THERAPY
  5. ASPIRIN [Concomitant]
  6. CERTICAN [Suspect]
     Indication: RENAL TRANSPLANT
     Dosage: 0.75 MG, BID
     Route: 048
     Dates: start: 20101125
  7. CORTICOSTEROIDS [Concomitant]
     Indication: RENAL TRANSPLANT
     Dosage: 5 MG, DAILY
     Route: 048
     Dates: start: 20101125
  8. ANTRA [Concomitant]
     Indication: GASTRITIS PROPHYLAXIS
     Dosage: 20 MG, QD
     Route: 048
     Dates: start: 20101125
  9. BACTRIM [Concomitant]
     Indication: PROPHYLAXIS
     Dosage: UNK
     Dates: start: 20101130
  10. CARVEDILOL [Concomitant]
     Indication: HYPERTENSION
     Dosage: UNK
     Dates: start: 20101213

REACTIONS (4)
  - RENAL IMPAIRMENT [None]
  - BLOOD CREATININE INCREASED [None]
  - TOXICITY TO VARIOUS AGENTS [None]
  - LUNG INFILTRATION [None]
